FAERS Safety Report 10021893 (Version 2)
Quarter: 2014Q2

REPORT INFORMATION
  Report Type: Report from Study
  Country: JP (occurrence: JP)
  Receive Date: 20140319
  Receipt Date: 20140418
  Transmission Date: 20141212
  Serious: Yes (Death)
  Sender: FDA-Public Use
  Company Number: JP-PFIZER INC-2014075134

PATIENT
  Age: 79 Year
  Sex: Female
  Weight: 59 kg

DRUGS (3)
  1. SILDENAFIL CITRATE [Suspect]
     Indication: PULMONARY ARTERIAL HYPERTENSION
     Dosage: 20 MG, 3X/DAY
     Route: 048
     Dates: start: 20081205, end: 20081210
  2. SILDENAFIL CITRATE [Suspect]
     Dosage: 20 MG, 1X/DAY
     Route: 048
     Dates: start: 20081211, end: 20090820
  3. SILDENAFIL CITRATE [Suspect]
     Dosage: 10 MG, 2X/DAY
     Route: 048
     Dates: start: 20090821, end: 20110606

REACTIONS (1)
  - Respiratory failure [Fatal]
